FAERS Safety Report 9197602 (Version 2)
Quarter: 2013Q2

REPORT INFORMATION
  Report Type: Spontaneous
  Country: FR (occurrence: FR)
  Receive Date: 20130328
  Receipt Date: 20130429
  Transmission Date: 20140414
  Serious: Yes (Hospitalization)
  Sender: FDA-Public Use
  Company Number: FR-GLAXOSMITHKLINE-B0878644A

PATIENT
  Age: 60 Year
  Sex: Male

DRUGS (10)
  1. REVOLADE [Suspect]
     Indication: IDIOPATHIC THROMBOCYTOPENIC PURPURA
     Dosage: 50MG PER DAY
     Route: 048
     Dates: start: 20130214, end: 20130312
  2. SPIRAMYCIN METRONIDAZOLE [Suspect]
     Dosage: 2TAB PER DAY
     Route: 048
     Dates: start: 20130204, end: 20130205
  3. NPLATE [Suspect]
     Indication: IDIOPATHIC THROMBOCYTOPENIC PURPURA
     Dosage: 2.5MCG WEEKLY
     Route: 065
     Dates: start: 201303, end: 201304
  4. PREVISCAN [Concomitant]
     Route: 048
  5. LOPRESSOR [Concomitant]
     Route: 048
  6. DIGOXINE [Concomitant]
     Route: 048
  7. ENALAPRIL [Concomitant]
  8. BIRODOGYL [Concomitant]
     Route: 048
  9. DANATROL [Concomitant]
     Indication: IDIOPATHIC THROMBOCYTOPENIC PURPURA
     Dates: start: 2013, end: 2013
  10. HUMAN NORMAL IMMUNOGLOBULIN [Concomitant]
     Route: 042
     Dates: start: 2013, end: 2013

REACTIONS (3)
  - Neutropenia [Not Recovered/Not Resolved]
  - Agranulocytosis [Not Recovered/Not Resolved]
  - Off label use [Unknown]
